FAERS Safety Report 12187569 (Version 1)
Quarter: 2016Q1

REPORT INFORMATION
  Report Type: Spontaneous
  Country: US (occurrence: None)
  Receive Date: 20160316
  Receipt Date: 20160316
  Transmission Date: 20160526
  Serious: Yes (Hospitalization)
  Sender: FDA-Public Use
  Company Number: None

PATIENT
  Age: 59 Year
  Sex: Male
  Weight: 69.26 kg

DRUGS (19)
  1. SOFOSBUVIR 400MG [Suspect]
     Active Substance: SOFOSBUVIR
     Indication: HEPATITIS C
     Route: 048
     Dates: start: 20140904, end: 20141224
  2. NEXIUM [Concomitant]
     Active Substance: ESOMEPRAZOLE MAGNESIUM
  3. LACTULOSE. [Concomitant]
     Active Substance: LACTULOSE
  4. ZOFRAN [Concomitant]
     Active Substance: ONDANSETRON HYDROCHLORIDE
  5. TRAZODONE [Concomitant]
     Active Substance: TRAZODONE HYDROCHLORIDE
  6. XANAX [Concomitant]
     Active Substance: ALPRAZOLAM
  7. BUPROPION. [Concomitant]
     Active Substance: BUPROPION
  8. TREPROSTIN [Concomitant]
  9. ZINC [Concomitant]
     Active Substance: ZINC\ZINC CHLORIDE
  10. SILDENAFIL. [Concomitant]
     Active Substance: SILDENAFIL
  11. RIFAXIMIN [Concomitant]
     Active Substance: RIFAXIMIN
  12. THIAMINE. [Concomitant]
     Active Substance: THIAMINE
  13. TRAMADOL. [Concomitant]
     Active Substance: TRAMADOL
  14. RIBAVIRIN 1000MG [Suspect]
     Active Substance: RIBAVIRIN
     Indication: HEPATITIS C
     Route: 048
     Dates: start: 20140904, end: 20141224
  15. AMILORIDE [Concomitant]
     Active Substance: AMILORIDE
  16. REQUIP [Concomitant]
     Active Substance: ROPINIROLE HYDROCHLORIDE
  17. LASIX [Concomitant]
     Active Substance: FUROSEMIDE
  18. MULTI VITAMIN [Concomitant]
     Active Substance: VITAMINS
  19. OXYCODONE [Concomitant]
     Active Substance: OXYCODONE

REACTIONS (2)
  - Insomnia [None]
  - Hepatic encephalopathy [None]

NARRATIVE: CASE EVENT DATE: 20141016
